FAERS Safety Report 12704245 (Version 1)
Quarter: 2016Q3

REPORT INFORMATION
  Report Type: Spontaneous
  Country: US (occurrence: US)
  Receive Date: 20160831
  Receipt Date: 20160831
  Transmission Date: 20161109
  Serious: Yes (Hospitalization, Other)
  Sender: FDA-Public Use
  Company Number: US-JNJFOC-20160818173

PATIENT
  Age: 69 Year
  Sex: Male
  Weight: 89.18 kg

DRUGS (8)
  1. XARELTO [Suspect]
     Active Substance: RIVAROXABAN
     Indication: ATRIAL FIBRILLATION
     Route: 048
     Dates: start: 2012
  2. METFORMIN [Suspect]
     Active Substance: METFORMIN HYDROCHLORIDE
     Indication: PRODUCT USED FOR UNKNOWN INDICATION
     Route: 048
     Dates: start: 2008
  3. VITAMIN D3 [Concomitant]
     Active Substance: CHOLECALCIFEROL
     Route: 048
     Dates: start: 20160101
  4. XARELTO [Suspect]
     Active Substance: RIVAROXABAN
     Indication: CEREBROVASCULAR ACCIDENT PROPHYLAXIS
     Route: 048
     Dates: start: 2012
  5. ASPIRIN. [Suspect]
     Active Substance: ASPIRIN
     Indication: PRODUCT USED FOR UNKNOWN INDICATION
     Route: 048
  6. CYANOCOBALAMIN. [Concomitant]
     Active Substance: CYANOCOBALAMIN
     Route: 048
  7. LOSARTAN. [Concomitant]
     Active Substance: LOSARTAN
     Dosage: DOSE 12.5MG TO 50 MG
     Route: 048
  8. AMLODIPINE [Concomitant]
     Active Substance: AMLODIPINE BESYLATE
     Dosage: DOSE 10 MG TO 20 MG
     Route: 048

REACTIONS (14)
  - Pyrexia [Unknown]
  - Leiomyosarcoma [Not Recovered/Not Resolved]
  - Vomiting [Unknown]
  - Haematemesis [Unknown]
  - Anaemia [Recovered/Resolved]
  - Metastatic neoplasm [Unknown]
  - Hypercalcaemia [Recovered/Resolved]
  - Hyperglycaemia [Recovered/Resolved]
  - Nausea [Unknown]
  - Diarrhoea [Unknown]
  - Activated partial thromboplastin time prolonged [Recovered/Resolved]
  - Hypoalbuminaemia [Not Recovered/Not Resolved]
  - Hyponatraemia [Recovered/Resolved]
  - Melaena [Unknown]

NARRATIVE: CASE EVENT DATE: 20130813
